FAERS Safety Report 14487380 (Version 2)
Quarter: 2018Q3

REPORT INFORMATION
  Report Type: Spontaneous
  Country: US (occurrence: US)
  Receive Date: 20180205
  Receipt Date: 20180724
  Transmission Date: 20181010
  Serious: Yes (Other)
  Sender: FDA-Public Use
  Company Number: US-BAYER-2018-021622

PATIENT
  Age: 24 Year
  Sex: Female
  Weight: 82.46 kg

DRUGS (6)
  1. MIRENA [Suspect]
     Active Substance: LEVONORGESTREL
     Dosage: 20 MCG/24HR, CONT
     Route: 015
     Dates: start: 20170515, end: 20171215
  2. TRANEXAMIC ACID. [Concomitant]
     Active Substance: TRANEXAMIC ACID
  3. FERROUS SULFATE. [Concomitant]
     Active Substance: FERROUS SULFATE
     Route: 048
  4. LYSTEDA [Concomitant]
     Active Substance: TRANEXAMIC ACID
     Dosage: 650 MG, TID
     Route: 048
  5. IRON SUPPLEMENT [Concomitant]
     Active Substance: IRON
  6. BACTRIM [Concomitant]
     Active Substance: SULFAMETHOXAZOLE\TRIMETHOPRIM
     Dosage: UNK UNK, BID
     Route: 048

REACTIONS (2)
  - Uterine haemorrhage [None]
  - Uterine leiomyoma [None]
